FAERS Safety Report 5371684-9 (Version None)
Quarter: 2007Q2

REPORT INFORMATION
  Report Type: 
  Country: None (occurrence: None)
  Receive Date: 20070625
  Receipt Date: 20070611
  Transmission Date: 20071010
  Serious: Yes (Other)
  Sender: FDA-Public Use
  Company Number: 157466ISR

PATIENT
  Age: 31 Year
  Sex: Female

DRUGS (1)
  1. SIMVASTATIN [Suspect]
     Indication: HYPERLIPIDAEMIA
     Dosage: 40 MG (10 MG, 4 IN 1 D)

REACTIONS (1)
  - GLYCOGEN STORAGE DISEASE TYPE V [None]
